FAERS Safety Report 23831825 (Version 1)
Quarter: 2024Q2

REPORT INFORMATION
  Report Type: Spontaneous
  Country: US (occurrence: None)
  Receive Date: 20240507
  Receipt Date: 20240507
  Transmission Date: 20240716
  Serious: Yes (Hospitalization)
  Sender: FDA-Public Use
  Company Number: None

PATIENT
  Age: 76 Year
  Sex: Female

DRUGS (2)
  1. COSENTYX [Suspect]
     Active Substance: SECUKINUMAB
  2. REPATHA [Suspect]
     Active Substance: EVOLOCUMAB

REACTIONS (4)
  - Cardiac failure [None]
  - Vomiting [None]
  - Blood pressure increased [None]
  - Haemorrhage [None]

NARRATIVE: CASE EVENT DATE: 20240503
